FAERS Safety Report 14992309 (Version 1)
Quarter: 2018Q2

REPORT INFORMATION
  Report Type: Spontaneous
  Country: US (occurrence: US)
  Receive Date: 20180609
  Receipt Date: 20180609
  Transmission Date: 20180711
  Serious: No
  Sender: FDA-Public Use
  Company Number: PHEH2018US021233

PATIENT
  Sex: Female

DRUGS (1)
  1. LORAZEPAM SANDOZ [Suspect]
     Active Substance: LORAZEPAM
     Indication: PRODUCT USED FOR UNKNOWN INDICATION
     Route: 065

REACTIONS (4)
  - Tinnitus [Unknown]
  - Dehydration [Unknown]
  - Pollakiuria [Unknown]
  - Product odour abnormal [Unknown]
